FAERS Safety Report 9133024 (Version 1)
Quarter: 2013Q1

REPORT INFORMATION
  Report Type: Spontaneous
  Country: ES (occurrence: ES)
  Receive Date: 20130301
  Receipt Date: 20130301
  Transmission Date: 20140127
  Serious: Yes (Life-Threatening, Hospitalization)
  Sender: FDA-Public Use
  Company Number: PHHY2013ES019463

PATIENT
  Age: 78 Year
  Sex: Male

DRUGS (3)
  1. SINTROM [Suspect]
     Indication: ATRIAL FIBRILLATION
     Dosage: 3 MG, UNK
     Route: 048
     Dates: start: 2012, end: 20120516
  2. SIMVASTATIN [Interacting]
     Indication: ISCHAEMIC CARDIOMYOPATHY
     Dosage: 40 MG, UNK
     Route: 048
     Dates: start: 201104, end: 20120606
  3. SIMVASTATIN [Interacting]
     Dosage: DOSE DECREASED

REACTIONS (2)
  - Haemorrhagic anaemia [Recovering/Resolving]
  - Upper gastrointestinal haemorrhage [Recovered/Resolved]
